FAERS Safety Report 4721844-2 (Version None)
Quarter: 2005Q3

REPORT INFORMATION
  Report Type: 
  Country: None (occurrence: None)
  Receive Date: 20050721
  Receipt Date: 20050509
  Transmission Date: 20060218
  Serious: No
  Sender: FDA-Public Use
  Company Number: US-BRISTOL-MYERS SQUIBB COMPANY-12960183

PATIENT
  Age: 78 Year
  Sex: Female
  Weight: 75 kg

DRUGS (5)
  1. COUMADIN [Suspect]
     Indication: ATRIAL FIBRILLATION
     Dosage: ON RX FOR PAST 5 OR 6 YEARS; CURRENTLY ON 3.75MG X 3/DAYS + 2.5MG X 4/DAYS
     Route: 048
  2. TAMOXIFEN CITRATE [Suspect]
  3. ALCOHOL [Suspect]
  4. TIMOLOL MALEATE [Concomitant]
  5. SYNTHROID [Concomitant]

REACTIONS (1)
  - INTERNATIONAL NORMALISED RATIO INCREASED [None]
